FAERS Safety Report 7091326-4 (Version None)
Quarter: 2010Q4

REPORT INFORMATION
  Report Type: 
  Country: None (occurrence: None)
  Receive Date: 20101109
  Receipt Date: 20101104
  Transmission Date: 20110411
  Serious: Yes (Hospitalization)
  Sender: FDA-Public Use
  Company Number: A0691056A

PATIENT
  Sex: Male
  Weight: 81.8 kg

DRUGS (6)
  1. AVANDIA [Suspect]
     Indication: DIABETES MELLITUS
     Route: 048
  2. PRANDIN [Concomitant]
  3. LIPITOR [Concomitant]
  4. PLAVIX [Concomitant]
  5. ACCUPRIL [Concomitant]
  6. GLUCOPHAGE [Concomitant]

REACTIONS (4)
  - CORONARY ARTERY DISEASE [None]
  - PLEURAL EFFUSION [None]
  - RENAL FAILURE ACUTE [None]
  - SILENT MYOCARDIAL INFARCTION [None]
